FAERS Safety Report 19651981 (Version 1)
Quarter: 2021Q3

REPORT INFORMATION
  Report Type: Spontaneous
  Country: US (occurrence: US)
  Receive Date: 20210803
  Receipt Date: 20210803
  Transmission Date: 20211014
  Serious: Yes (Other)
  Sender: FDA-Public Use
  Company Number: None

PATIENT
  Age: 45 Year
  Sex: Male
  Weight: 87.03 kg

DRUGS (1)
  1. NAPHCON A [Suspect]
     Active Substance: NAPHAZOLINE HYDROCHLORIDE\PHENIRAMINE MALEATE
     Indication: MULTIPLE ALLERGIES
     Route: 047
     Dates: start: 20210730, end: 20210731

REACTIONS (6)
  - Eye pain [None]
  - Eyelid disorder [None]
  - Blister [None]
  - Purulence [None]
  - Ocular hyperaemia [None]
  - Eye swelling [None]

NARRATIVE: CASE EVENT DATE: 20210731
